FAERS Safety Report 20626658 (Version 2)
Quarter: 2022Q4

REPORT INFORMATION
  Report Type: Report from Study
  Country: US (occurrence: None)
  Receive Date: 20220323
  Receipt Date: 20221108
  Transmission Date: 20230112
  Serious: Yes (Hospitalization)
  Sender: FDA-Public Use
  Company Number: US-ROCHE-783396

PATIENT
  Age: 61 Year
  Sex: Female

DRUGS (4)
  1. PACLITAXEL [Suspect]
     Active Substance: PACLITAXEL
     Indication: Malignant peritoneal neoplasm
     Dosage: CYCLE 21 DAYS; OVER 3 HRS ON DAY1; LAST DOSE PRIOR TO SAE 1/12/10
     Route: 042
     Dates: start: 20100611, end: 20101220
  2. CARBOPLATIN [Suspect]
     Active Substance: CARBOPLATIN
     Indication: Malignant peritoneal neoplasm
     Dosage: AUC 5 OVER 30 MIN ON DAY 1; LAST DOSE PRIOR TO SAE: 1/12/10
     Route: 042
     Dates: start: 20100611, end: 20101220
  3. DOCETAXEL [Suspect]
     Active Substance: DOCETAXEL
     Indication: Malignant peritoneal neoplasm
     Dosage: CYCLE: 21 DAYS; OVER 1 HR ON DAY 1; LAST DOSE PRIOR TO SAE: 1/12/10
     Route: 042
     Dates: start: 20100611, end: 20101220
  4. BEVACIZUMAB [Suspect]
     Active Substance: BEVACIZUMAB
     Indication: Malignant peritoneal neoplasm
     Dosage: CYCLE 21 DAYS; OVER 30-90 MINS ON DAY 1; LAST DOSE PRIOR TO SAE: 1/12/10
     Route: 042
     Dates: start: 20100611, end: 20101220

REACTIONS (4)
  - Cerebral ischaemia [Not Recovered/Not Resolved]
  - Hyponatraemia [Not Recovered/Not Resolved]
  - Meningitis [Not Recovered/Not Resolved]
  - Arterial injury [Not Recovered/Not Resolved]

NARRATIVE: CASE EVENT DATE: 20101219
